FAERS Safety Report 5638272-8 (Version None)
Quarter: 2008Q1

REPORT INFORMATION
  Report Type: 
  Country: None (occurrence: None)
  Receive Date: 20080226
  Receipt Date: 20080212
  Transmission Date: 20080703
  Serious: Yes (Other)
  Sender: FDA-Public Use
  Company Number: FR-AMGEN-US248024

PATIENT
  Sex: Female
  Weight: 60 kg

DRUGS (5)
  1. ENBREL [Suspect]
     Indication: RHEUMATOID ARTHRITIS
     Dosage: UNKNOWN
     Route: 058
     Dates: start: 20031001
  2. NOVATREX [Suspect]
     Indication: RHEUMATOID ARTHRITIS
     Dosage: UNKNOWN
     Route: 048
     Dates: start: 19990601
  3. DI-ANTALVIC [Concomitant]
     Dosage: UNKNOWN
     Route: 065
     Dates: start: 19990101
  4. EUPANTOL [Concomitant]
     Dosage: 20 MG; FREQUENCY UNSPEC.
     Route: 065
     Dates: start: 20040101
  5. VOLTAREN [Concomitant]
     Dosage: 100 MG; FREQUENCY UNSPEC.
     Route: 065
     Dates: start: 19990101

REACTIONS (3)
  - BASAL CELL CARCINOMA [None]
  - HYPERKERATOSIS [None]
  - SOLAR ELASTOSIS [None]
